FAERS Safety Report 4824027-0 (Version None)
Quarter: 2005Q4

REPORT INFORMATION
  Report Type: 
  Country: None (occurrence: None)
  Receive Date: 20051108
  Receipt Date: 20051026
  Transmission Date: 20060501
  Serious: Yes (Other)
  Sender: FDA-Public Use
  Company Number: HQWYE038802FEB05

PATIENT
  Age: 59 Year
  Sex: Male

DRUGS (9)
  1. ROFERON-A [Suspect]
     Indication: METASTATIC RENAL CELL CARCINOMA
     Dosage: 9 MU 3X PER WEEK SC
     Route: 058
     Dates: start: 20040713, end: 20050122
  2. COLACE (DOCUSATE SODIUM) [Concomitant]
  3. TRIAZID (HYDROCHLOROTHIAZIDE/TRIAMTERENE) [Concomitant]
  4. MAXERAN (METOCLORPAMIDE HYDROCHLORIDE) [Concomitant]
  5. MAXERAN (METOCLORPAMIDE HYDROCHLORIDE) [Concomitant]
  6. IBUPROFEN [Concomitant]
  7. BLISTEX (CAMPHOR/PHENOL) [Concomitant]
  8. TRIAMCINOLONE ACETONIDE [Concomitant]
  9. HYDROCORTISONE ACETATE (HYDROCORTISONE ACETATE) [Concomitant]

REACTIONS (5)
  - ARTERIOSCLEROSIS CORONARY ARTERY [None]
  - BRONCHIECTASIS [None]
  - HEADACHE [None]
  - LUNG NEOPLASM [None]
  - PULMONARY FIBROSIS [None]
